FAERS Safety Report 11910210 (Version 1)
Quarter: 2016Q1

REPORT INFORMATION
  Report Type: Spontaneous
  Country: US (occurrence: US)
  Receive Date: 20160112
  Receipt Date: 20160112
  Transmission Date: 20160526
  Serious: No
  Sender: FDA-Public Use
  Company Number: US-PFIZER INC-2016009628

PATIENT
  Sex: Female
  Weight: 108.86 kg

DRUGS (2)
  1. ZOLOFT [Suspect]
     Active Substance: SERTRALINE HYDROCHLORIDE
     Indication: PANIC ATTACK
     Dosage: 200 MG, 2X/DAY (ONCE IN THE MORNING AND ONCE IN THE AFTERNOON)
     Route: 048
     Dates: start: 1993
  2. ZOLOFT [Suspect]
     Active Substance: SERTRALINE HYDROCHLORIDE
     Dosage: 200 MG, 2X/DAY (ONCE IN THE MORNING AND ONCE IN THE AFTERNOON)
     Route: 048

REACTIONS (3)
  - Overdose [Unknown]
  - Spinal disorder [Unknown]
  - Paraesthesia [Recovered/Resolved]

NARRATIVE: CASE EVENT DATE: 1993
